FAERS Safety Report 21710250 (Version 1)
Quarter: 2022Q4

REPORT INFORMATION
  Report Type: Spontaneous
  Country: CA (occurrence: CA)
  Receive Date: 20221211
  Receipt Date: 20221211
  Transmission Date: 20230113
  Serious: Yes (Hospitalization)
  Sender: FDA-Public Use
  Company Number: CA-CELLTRION INC.-2022CA020826

PATIENT

DRUGS (3)
  1. INFLECTRA [Suspect]
     Active Substance: INFLIXIMAB-DYYB
     Indication: Ankylosing spondylitis
     Dosage: 200 MG, INDUCTION WEEK 0,2,6 THEN Q 8 WEEKS
     Route: 042
     Dates: start: 20221004
  2. NAPROXEN [Concomitant]
     Active Substance: NAPROXEN
     Dosage: UNK
  3. TYLENOL ARTHRITIS PAIN [Concomitant]
     Active Substance: ACETAMINOPHEN
     Dosage: UNK

REACTIONS (6)
  - Condition aggravated [Recovering/Resolving]
  - Sensitivity to weather change [Unknown]
  - Musculoskeletal discomfort [Unknown]
  - Musculoskeletal discomfort [Unknown]
  - Impaired quality of life [Unknown]
  - Mastication disorder [Unknown]

NARRATIVE: CASE EVENT DATE: 20220101
